FAERS Safety Report 19434205 (Version 1)
Quarter: 2021Q2

REPORT INFORMATION
  Report Type: Spontaneous
  Country: US (occurrence: US)
  Receive Date: 20210617
  Receipt Date: 20210617
  Transmission Date: 20210717
  Serious: No
  Sender: FDA-Public Use
  Company Number: US-ROCHE-2594418

PATIENT
  Age: 6 Year
  Sex: Male

DRUGS (1)
  1. ACTEMRA [Suspect]
     Active Substance: TOCILIZUMAB
     Indication: JUVENILE IDIOPATHIC ARTHRITIS
     Route: 058

REACTIONS (4)
  - Product dose omission issue [Unknown]
  - Syringe issue [Unknown]
  - Product complaint [Unknown]
  - Haemorrhage [Recovered/Resolved]

NARRATIVE: CASE EVENT DATE: 20200425
